FAERS Safety Report 19760996 (Version 1)
Quarter: 2021Q3

REPORT INFORMATION
  Report Type: Spontaneous
  Country: US (occurrence: US)
  Receive Date: 20210825
  Receipt Date: 20210825
  Transmission Date: 20211014
  Serious: Yes (Hospitalization)
  Sender: FDA-Public Use
  Company Number: None

PATIENT
  Age: 10 Year
  Sex: Male

DRUGS (10)
  1. VIGABATRIN 500MG PWD [Suspect]
     Active Substance: VIGABATRIN
     Indication: LENNOX-GASTAUT SYNDROME
     Route: 048
     Dates: start: 20201103
  2. DIAZEPAM GEL [Concomitant]
     Active Substance: DIAZEPAM
  3. METHYLPRED [Concomitant]
     Active Substance: METHYLPREDNISOLONE
  4. EPIDIOLEX (RETAIL0 [Concomitant]
  5. ONFI [Concomitant]
     Active Substance: CLOBAZAM
  6. PHENOBARB [Concomitant]
     Active Substance: PHENOBARBITAL SODIUM
  7. NAYZILAM SPR [Concomitant]
  8. LORAZEPAM. [Concomitant]
     Active Substance: LORAZEPAM
  9. VIMPAT [Concomitant]
     Active Substance: LACOSAMIDE
  10. LEVETIRACETA [Concomitant]
     Active Substance: LEVETIRACETAM

REACTIONS (1)
  - Seizure [None]

NARRATIVE: CASE EVENT DATE: 20210825
